FAERS Safety Report 10138233 (Version 1)
Quarter: 2014Q2

REPORT INFORMATION
  Report Type: Spontaneous
  Country: US (occurrence: US)
  Receive Date: 20140429
  Receipt Date: 20140429
  Transmission Date: 20141212
  Serious: No
  Sender: FDA-Public Use
  Company Number: US-BAYER-2014-061184

PATIENT
  Age: 49 Year
  Sex: Female
  Weight: 93 kg

DRUGS (6)
  1. YASMIN [Suspect]
     Route: 048
  2. IBUPROFEN [Concomitant]
     Dosage: 200 MG, UNK
     Route: 048
  3. ASPIRIN [Concomitant]
     Dosage: 325 MG, UNK
     Route: 048
  4. CYCLOBENZAPRINE [Concomitant]
  5. NAPROSYN [Concomitant]
     Indication: PAIN
     Dosage: 500 MG, UNK
  6. MULTIVITAMINS [Concomitant]

REACTIONS (1)
  - Thrombophlebitis superficial [None]
